FAERS Safety Report 9461698 (Version 1)
Quarter: 2013Q3

REPORT INFORMATION
  Report Type: Report from Study
  Country: DE (occurrence: DE)
  Receive Date: 20130816
  Receipt Date: 20130816
  Transmission Date: 20140515
  Serious: Yes (Death, Other)
  Sender: FDA-Public Use
  Company Number: DE-ABBOTT-13P-062-1077849-00

PATIENT
  Age: 82 Year
  Sex: Male

DRUGS (3)
  1. TRENANTONE [Suspect]
     Indication: PROSTATE CANCER
     Route: 058
     Dates: start: 20120110, end: 20120110
  2. ACETYLSALICYLIC ACID [Concomitant]
     Indication: PRODUCT USED FOR UNKNOWN INDICATION
  3. CARDIAC GLYCOSIDES [Concomitant]
     Indication: PRODUCT USED FOR UNKNOWN INDICATION

REACTIONS (7)
  - Anuria [Fatal]
  - Renal failure acute [Fatal]
  - Renal failure chronic [Fatal]
  - Cardiac failure [Unknown]
  - Urinary tract infection [Unknown]
  - General physical health deterioration [Unknown]
  - Hydronephrosis [Unknown]
